FAERS Safety Report 8378899-6 (Version None)
Quarter: 2012Q2

REPORT INFORMATION
  Report Type: 
  Country: None (occurrence: None)
  Receive Date: 20120522
  Receipt Date: 20120522
  Transmission Date: 20120825
  Serious: Yes (Hospitalization)
  Sender: FDA-Public Use
  Company Number: None

PATIENT
  Age: 55 Year
  Sex: Female
  Weight: 64.8644 kg

DRUGS (7)
  1. PEGASYS [Suspect]
     Indication: HEPATITIS C
     Dosage: 180MCG SUBCUTANEOUSLY WEEKLY
     Route: 058
  2. RIBASPHERE [Concomitant]
  3. LEVOTHYROXINE SODIUM [Concomitant]
  4. SPIRONOLACTONE [Concomitant]
  5. FUROSEMIDE [Concomitant]
  6. GENERLAC [Concomitant]
  7. INCIVEK [Concomitant]

REACTIONS (3)
  - ABDOMINAL PAIN [None]
  - BLOOD SODIUM DECREASED [None]
  - BLOOD POTASSIUM ABNORMAL [None]
